FAERS Safety Report 5330644-4 (Version None)
Quarter: 2007Q2

REPORT INFORMATION
  Report Type: 
  Country: None (occurrence: None)
  Receive Date: 20070517
  Receipt Date: 20070504
  Transmission Date: 20071010
  Serious: Yes (Other)
  Sender: FDA-Public Use
  Company Number: 2007319686

PATIENT
  Age: 40 Year
  Sex: Male

DRUGS (1)
  1. BENADRYL [Suspect]
     Dosage: ^TOOK 10 TABLETS^,  ORAL
     Route: 048
     Dates: start: 20070504, end: 20070504

REACTIONS (1)
  - VOMITING [None]
